FAERS Safety Report 19815940 (Version 1)
Quarter: 2021Q3

REPORT INFORMATION
  Report Type: Other
  Country: FR (occurrence: FR)
  Receive Date: 20210910
  Receipt Date: 20210910
  Transmission Date: 20211014
  Serious: Yes (Death, Other)
  Sender: FDA-Public Use
  Company Number: FR-ROCHE-2905926

PATIENT

DRUGS (2)
  1. RITUXIMAB. [Suspect]
     Active Substance: RITUXIMAB
     Indication: B-CELL LYMPHOMA
     Dosage: ON DAYS ?2 AND 1 DURING THE FIRST 2 CHEMOTHERAPY
     Route: 042
  2. RITUXIMAB. [Suspect]
     Active Substance: RITUXIMAB
     Indication: ACUTE LEUKAEMIA
     Dosage: AND ON DAY 1 OF THE 2 FOLLOWING COURSES (TOTAL 6 INFUSIONS)
     Route: 042

REACTIONS (3)
  - Infection [Unknown]
  - Toxicity to various agents [Fatal]
  - Stomatitis [Unknown]
